FAERS Safety Report 4942607-9 (Version None)
Quarter: 2006Q1

REPORT INFORMATION
  Report Type: 
  Country: None (occurrence: None)
  Receive Date: 20060310
  Receipt Date: 20060223
  Transmission Date: 20060701
  Serious: Yes (Other)
  Sender: FDA-Public Use
  Company Number: USA-2006-0023732

PATIENT
  Age: 36 Year
  Sex: Female

DRUGS (1)
  1. OXYCONTIN [Suspect]
     Indication: HEADACHE
     Dosage: MG

REACTIONS (10)
  - AMENORRHOEA [None]
  - ANOREXIA [None]
  - CONSTIPATION [None]
  - DRUG DEPENDENCE [None]
  - DRUG EXPOSURE DURING PREGNANCY [None]
  - GENERAL PHYSICAL HEALTH DETERIORATION [None]
  - IMPAIRED HEALING [None]
  - NEOPLASM MALIGNANT [None]
  - POISONING [None]
  - PREMATURE LABOUR [None]
